FAERS Safety Report 6086603-X (Version None)
Quarter: 2009Q1

REPORT INFORMATION
  Report Type: 
  Country: None (occurrence: None)
  Receive Date: 20090223
  Receipt Date: 20090210
  Transmission Date: 20090719
  Serious: Yes (Other)
  Sender: FDA-Public Use
  Company Number: JP-PFIZER INC-2009163080

PATIENT

DRUGS (5)
  1. GABAPEN [Suspect]
     Indication: NEUROPATHY PERIPHERAL
     Dosage: 200 MG, 1X/DAY
     Route: 048
     Dates: start: 20070606, end: 20090128
  2. NELBON [Suspect]
     Indication: INSOMNIA
     Dosage: 5 MG, 1X/DAY
     Route: 048
     Dates: start: 20010101, end: 20090122
  3. MEXITIL [Suspect]
     Indication: HYPOAESTHESIA
     Dosage: 50 MG, 4X/DAY
     Route: 048
     Dates: start: 20010101
  4. DRUG, UNSPECIFIED [Concomitant]
     Dosage: UNK
  5. OTHER HYPNOTICS AND SEDATIVES [Concomitant]
     Dosage: UNK

REACTIONS (3)
  - DELIRIUM [None]
  - DRUG LEVEL INCREASED [None]
  - RENAL IMPAIRMENT [None]
